FAERS Safety Report 5417758-5 (Version None)
Quarter: 2007Q3

REPORT INFORMATION
  Report Type: 
  Country: None (occurrence: None)
  Receive Date: 20070817
  Receipt Date: 20070808
  Transmission Date: 20080115
  Serious: Yes (Other)
  Sender: FDA-Public Use
  Company Number: PHHO2007MX13308

PATIENT
  Age: 65 Year
  Sex: Female

DRUGS (3)
  1. TRENTAL [Concomitant]
  2. TRILEPTAL [Suspect]
     Indication: ASTHENIA
     Dosage: 1/4 TABLET (300MG)/DAY
     Dates: start: 20060801
  3. TRILEPTAL [Suspect]
     Dosage: 1/4 TABLET (300MG)/WK

REACTIONS (2)
  - BLINDNESS [None]
  - VISION BLURRED [None]
